FAERS Safety Report 8249792-4 (Version None)
Quarter: 2012Q1

REPORT INFORMATION
  Report Type: 
  Country: None (occurrence: None)
  Receive Date: 20120328
  Receipt Date: 20120319
  Transmission Date: 20120608
  Serious: Yes (Hospitalization, Other)
  Sender: FDA-Public Use
  Company Number: TPA2012A01551

PATIENT
  Age: 62 Year
  Sex: Male
  Weight: 144.6975 kg

DRUGS (2)
  1. COREG [Suspect]
     Indication: CARDIAC FAILURE CONGESTIVE
     Dosage: 6 MG, 1 IN 1 D, PER ORAL
     Route: 048
     Dates: start: 20070101
  2. ACTOS [Suspect]
     Indication: TYPE 2 DIABETES MELLITUS
     Dosage: 45 MG, 1 IN 1 D, PER ORAL
     Route: 048
     Dates: start: 20010101, end: 20070101

REACTIONS (8)
  - PAIN IN EXTREMITY [None]
  - SURGICAL FAILURE [None]
  - FLUID RETENTION [None]
  - MYOCARDIAL INFARCTION [None]
  - EJECTION FRACTION DECREASED [None]
  - CARDIAC FAILURE CONGESTIVE [None]
  - KNEE ARTHROPLASTY [None]
  - WEIGHT INCREASED [None]
